FAERS Safety Report 22589784 (Version 1)
Quarter: 2023Q2

REPORT INFORMATION
  Report Type: Spontaneous
  Country: EG (occurrence: None)
  Receive Date: 20230609
  Receipt Date: 20230609
  Transmission Date: 20230722
  Serious: Yes (Other)
  Sender: FDA-Public Use
  Company Number: None

PATIENT
  Age: 48 Year
  Sex: Male
  Weight: 91 kg

DRUGS (1)
  1. LEQVIO [Suspect]
     Active Substance: INCLISIRAN SODIUM
     Indication: Primary hypercholesterolaemia
     Dosage: OTHER FREQUENCY : ONE EVERY 6 MONTHS;?
     Route: 058
     Dates: start: 20230527, end: 20230604

REACTIONS (5)
  - Drug eruption [None]
  - Urticaria [None]
  - Pruritus [None]
  - Skin lesion [None]
  - Arthralgia [None]

NARRATIVE: CASE EVENT DATE: 20230604
